FAERS Safety Report 9360966 (Version 1)
Quarter: 2013Q2

REPORT INFORMATION
  Report Type: Spontaneous
  Country: US (occurrence: None)
  Receive Date: 20130620
  Receipt Date: 20130620
  Transmission Date: 20140414
  Serious: Yes (Disabling, Other)
  Sender: FDA-Public Use
  Company Number: None

PATIENT
  Age: 83 Year
  Sex: Male
  Weight: 88.45 kg

DRUGS (1)
  1. FLUOROMETHOL [Suspect]
     Indication: EYE IRRITATION

REACTIONS (1)
  - Blindness unilateral [None]
